FAERS Safety Report 10405918 (Version 2)
Quarter: 2014Q3

REPORT INFORMATION
  Report Type: Spontaneous
  Country: US (occurrence: None)
  Receive Date: 20140821
  Receipt Date: 20140908
  Transmission Date: 20150326
  Serious: Yes (Other)
  Sender: FDA-Public Use
  Company Number: 2013-US-000473

PATIENT
  Age: 26 Year
  Sex: Female
  Weight: 59 kg

DRUGS (5)
  1. XYREM [Suspect]
     Active Substance: SODIUM OXYBATE
     Indication: NARCOLEPSY
     Route: 048
     Dates: start: 201202, end: 2012
  2. DEPAKOTE [Concomitant]
     Active Substance: DIVALPROEX SODIUM
  3. KEPPRA [Concomitant]
     Active Substance: LEVETIRACETAM
  4. AMBIEN [Concomitant]
     Active Substance: ZOLPIDEM TARTRATE
  5. XYREM [Suspect]
     Active Substance: SODIUM OXYBATE
     Indication: SOMNOLENCE
     Route: 048
     Dates: start: 201202, end: 2012

REACTIONS (6)
  - Insomnia [None]
  - Feeling abnormal [None]
  - Epilepsy [None]
  - Poor quality sleep [None]
  - Intentional product misuse [None]
  - Convulsion [None]

NARRATIVE: CASE EVENT DATE: 201306
